FAERS Safety Report 4696925-2 (Version None)
Quarter: 2005Q2

REPORT INFORMATION
  Report Type: 
  Country: None (occurrence: None)
  Receive Date: 20050622
  Receipt Date: 20050610
  Transmission Date: 20051028
  Serious: Yes (Hospitalization)
  Sender: FDA-Public Use
  Company Number: JP-BRISTOL-MYERS SQUIBB COMPANY-13005483

PATIENT
  Age: 58 Year
  Sex: Male

DRUGS (9)
  1. RESLIN [Suspect]
     Indication: DEPRESSION
     Route: 048
     Dates: start: 20050511
  2. RESLIN [Suspect]
     Indication: INSOMNIA
     Route: 048
     Dates: start: 20050511
  3. AMOBAN [Suspect]
     Indication: DEPRESSION
     Route: 048
     Dates: start: 20050511
  4. AMOBAN [Suspect]
     Indication: INSOMNIA
     Route: 048
     Dates: start: 20050511
  5. TAKEPRON [Suspect]
     Dates: start: 20050521
  6. GASLON N [Concomitant]
     Dates: start: 19990512
  7. LIPOVAS [Concomitant]
     Dates: start: 20000906, end: 20050601
  8. DIART [Concomitant]
     Dates: start: 20001129
  9. THYRADIN S [Concomitant]
     Dates: start: 20031008

REACTIONS (1)
  - BLOOD CREATINE PHOSPHOKINASE INCREASED [None]
